FAERS Safety Report 20085620 (Version 1)
Quarter: 2021Q4

REPORT INFORMATION
  Report Type: Spontaneous
  Country: AU (occurrence: AU)
  Receive Date: 20211118
  Receipt Date: 20211118
  Transmission Date: 20220303
  Serious: Yes (Life-Threatening, Hospitalization, Other)
  Sender: FDA-Public Use
  Company Number: AU-PFIZER INC-202101552389

PATIENT
  Age: 14 Year
  Sex: Female

DRUGS (1)
  1. ETHINYL ESTRADIOL\LEVONORGESTREL [Suspect]
     Active Substance: ETHINYL ESTRADIOL\LEVONORGESTREL
     Dosage: UNK
     Route: 048

REACTIONS (4)
  - Pulmonary embolism [Recovered/Resolved]
  - Cardiac dysfunction [Recovered/Resolved]
  - Hypercoagulation [Recovered/Resolved]
  - Off label use [Unknown]
